FAERS Safety Report 15005210 (Version 5)
Quarter: 2019Q2

REPORT INFORMATION
  Report Type: Spontaneous
  Country: US (occurrence: US)
  Receive Date: 20180613
  Receipt Date: 20190529
  Transmission Date: 20190711
  Serious: Yes (Hospitalization)
  Sender: FDA-Public Use
  Company Number: US-ALKERMES INC.-ALK-2018-003045

PATIENT
  Age: 40 Year
  Sex: Male
  Weight: 130.61 kg

DRUGS (10)
  1. RISPERDAL [Suspect]
     Active Substance: RISPERIDONE
     Indication: SCHIZOPHRENIA
     Route: 048
  2. DEPAKOTE [Concomitant]
     Active Substance: DIVALPROEX SODIUM
     Indication: PRODUCT USED FOR UNKNOWN INDICATION
     Dosage: UNK
     Dates: start: 2015
  3. NORVASC [Concomitant]
     Active Substance: AMLODIPINE BESYLATE
     Indication: PRODUCT USED FOR UNKNOWN INDICATION
  4. ARISTADA [Suspect]
     Active Substance: ARIPIPRAZOLE LAUROXIL
     Indication: SCHIZOPHRENIA
     Dosage: 1064 MG, Q8WK
     Route: 030
     Dates: start: 20190515
  5. GEODON [Concomitant]
     Active Substance: ZIPRASIDONE HYDROCHLORIDE\ZIPRASIDONE MESYLATE
     Indication: PRODUCT USED FOR UNKNOWN INDICATION
     Dosage: UNK
     Dates: start: 201809
  6. ZYRTEC [Concomitant]
     Active Substance: CETIRIZINE HYDROCHLORIDE
     Indication: PRODUCT USED FOR UNKNOWN INDICATION
     Dosage: UNK
  7. INVEGA [Concomitant]
     Active Substance: PALIPERIDONE
     Indication: PRODUCT USED FOR UNKNOWN INDICATION
     Dosage: 9 MG, UNK
  8. ZYPREXA [Suspect]
     Active Substance: OLANZAPINE
     Indication: PRODUCT USED FOR UNKNOWN INDICATION
     Dosage: UNK
     Dates: start: 201810, end: 20190416
  9. ARISTADA [Suspect]
     Active Substance: ARIPIPRAZOLE LAUROXIL
     Dosage: 441 MG, QMO
     Route: 030
     Dates: start: 20180423, end: 20180530
  10. FANAPT [Concomitant]
     Active Substance: ILOPERIDONE
     Indication: PRODUCT USED FOR UNKNOWN INDICATION
     Dosage: 6 MG, UNK

REACTIONS (19)
  - Soliloquy [Unknown]
  - Energy increased [Recovered/Resolved]
  - Euphoric mood [Recovered/Resolved]
  - Obsessive thoughts [Not Recovered/Not Resolved]
  - Somnolence [Not Recovered/Not Resolved]
  - Affect lability [Unknown]
  - Off label use [Not Recovered/Not Resolved]
  - Mania [Unknown]
  - Injection site pain [Recovered/Resolved]
  - Tachyphrenia [Recovered/Resolved]
  - Insomnia [Not Recovered/Not Resolved]
  - Hypersomnia [Recovered/Resolved]
  - Vertigo [Recovered/Resolved]
  - Fatigue [Unknown]
  - Thinking abnormal [Recovered/Resolved]
  - Headache [Not Recovered/Not Resolved]
  - Panic attack [Recovered/Resolved]
  - Agitation [Not Recovered/Not Resolved]
  - Injection site haemorrhage [Recovered/Resolved]

NARRATIVE: CASE EVENT DATE: 201806
